FAERS Safety Report 8596390-9 (Version None)
Quarter: 2012Q3

REPORT INFORMATION
  Report Type: 
  Country: None (occurrence: None)
  Receive Date: 20120815
  Receipt Date: 20120808
  Transmission Date: 20120928
  Serious: Yes (Other)
  Sender: FDA-Public Use
  Company Number: US-PFIZER INC-2012194498

PATIENT
  Sex: Male

DRUGS (3)
  1. XANAX [Suspect]
     Dosage: UNK
  2. LYRICA [Suspect]
     Dosage: 75 MG, 2X/DAY
  3. GEODON [Suspect]
     Dosage: UNK

REACTIONS (1)
  - HALLUCINATION [None]
